FAERS Safety Report 4325051-7 (Version None)
Quarter: 2004Q1

REPORT INFORMATION
  Report Type: 
  Country: None (occurrence: None)
  Receive Date: 20040326
  Receipt Date: 20040326
  Transmission Date: 20041129
  Serious: Yes (Other)
  Sender: FDA-Public Use
  Company Number: None

PATIENT
  Sex: Female
  Weight: 48.9885 kg

DRUGS (6)
  1. PAXIL [Suspect]
     Indication: ANXIETY
     Dosage: 1 A DAY ORAL
     Route: 048
     Dates: start: 19940608, end: 19940708
  2. PAXIL [Suspect]
     Indication: DEPRESSION
     Dosage: 1 A DAY ORAL
     Route: 048
     Dates: start: 19940608, end: 19940708
  3. EFFEXOR [Suspect]
     Indication: ANXIETY
     Dosage: 1 A DAY ORAL
     Route: 048
     Dates: start: 19940608, end: 19940708
  4. EFFEXOR [Suspect]
     Indication: DEPRESSION
     Dosage: 1 A DAY ORAL
     Route: 048
     Dates: start: 19940608, end: 19940708
  5. ZOLOFT [Suspect]
     Indication: ANXIETY
     Dosage: 1 A DAY ORAL
     Route: 048
     Dates: start: 19960806, end: 19960820
  6. ZOLOFT [Suspect]
     Indication: DEPRESSION
     Dosage: 1 A DAY ORAL
     Route: 048
     Dates: start: 19960806, end: 19960820

REACTIONS (4)
  - DEPRESSION [None]
  - INSOMNIA [None]
  - MARKEDLY REDUCED DIETARY INTAKE [None]
  - SUICIDAL IDEATION [None]
